FAERS Safety Report 8975209 (Version 3)
Quarter: 2013Q3

REPORT INFORMATION
  Report Type: Report from Study
  Country: MX (occurrence: MX)
  Receive Date: 20121219
  Receipt Date: 20130830
  Transmission Date: 20140515
  Serious: Yes (Other)
  Sender: FDA-Public Use
  Company Number: PHHY2012MX117280

PATIENT
  Age: 71 Year
  Sex: Female

DRUGS (4)
  1. EXFORGE [Suspect]
     Indication: HYPERTENSION
     Dosage: 1 DF (160 MG VALS,5 MG AMLO) DAILY
     Route: 048
     Dates: start: 20111120
  2. AKSPRI [Suspect]
     Dosage: 1 DF, UNK
     Dates: start: 20111120
  3. JANUMET [Concomitant]
     Indication: DIABETES MELLITUS
     Dosage: 2 DF, UNK
     Dates: start: 20111120
  4. OMACOR [Concomitant]
     Indication: BLOOD TRIGLYCERIDES
     Dosage: 1 DF, UNK
     Dates: start: 20121210

REACTIONS (5)
  - Osteoporosis [Recovered/Resolved]
  - Disease progression [Recovered/Resolved]
  - Memory impairment [Unknown]
  - Pain [Unknown]
  - Hypertension [Recovered/Resolved]
